FAERS Safety Report 9478013 (Version 1)
Quarter: 2013Q3

REPORT INFORMATION
  Report Type: Spontaneous
  Country: CA (occurrence: CA)
  Receive Date: 20130827
  Receipt Date: 20130827
  Transmission Date: 20140515
  Serious: Yes (Life-Threatening, Hospitalization, Other)
  Sender: FDA-Public Use
  Company Number: CA-AMGEN-CANSP2013059604

PATIENT
  Age: 73 Year
  Sex: Male

DRUGS (7)
  1. ENBREL [Suspect]
     Indication: RHEUMATOID ARTHRITIS
     Dosage: 25 MG, UNK
     Route: 065
     Dates: start: 20050113
  2. INSULIN [Concomitant]
     Dosage: 30/70
  3. VITAMIN B12                        /00056201/ [Concomitant]
     Dosage: UNK
  4. TECTA [Concomitant]
     Dosage: 40 MG ONCE DAILY
  5. ROSUVASTATIN [Concomitant]
     Dosage: 10 MG, UNK
  6. RAMIPRIL [Concomitant]
     Dosage: 5MG 2X PER DAY
  7. TYLENOL                            /00020001/ [Concomitant]
     Dosage: PRN

REACTIONS (8)
  - Prostate cancer [Recovering/Resolving]
  - Sepsis [Recovered/Resolved]
  - Loss of consciousness [Unknown]
  - Pollakiuria [Unknown]
  - Arthritis [Not Recovered/Not Resolved]
  - Pain in extremity [Unknown]
  - Arthralgia [Unknown]
  - No therapeutic response [Unknown]
